FAERS Safety Report 21906034 (Version 4)
Quarter: 2023Q1

REPORT INFORMATION
  Report Type: Spontaneous
  Country: US (occurrence: US)
  Receive Date: 20230124
  Receipt Date: 20230318
  Transmission Date: 20230418
  Serious: No
  Sender: FDA-Public Use
  Company Number: US-AMGEN-USASP2023009600

PATIENT
  Age: 50 Year
  Sex: Female

DRUGS (2)
  1. AIMOVIG [Suspect]
     Active Substance: ERENUMAB-AOOE
     Indication: Migraine prophylaxis
     Dosage: 70 MILLIGRAM, QMO
     Route: 065
     Dates: start: 202211
  2. AIMOVIG [Suspect]
     Active Substance: ERENUMAB-AOOE
     Dosage: UNK UNK, QMO
     Route: 058

REACTIONS (7)
  - Wrong technique in product usage process [Recovered/Resolved]
  - Weight increased [Recovered/Resolved]
  - Mood altered [Recovered/Resolved]
  - Product communication issue [Recovered/Resolved]
  - Injection site induration [Recovered/Resolved]
  - Injection site pain [Recovered/Resolved]
  - Injection site erythema [Recovered/Resolved]

NARRATIVE: CASE EVENT DATE: 20220101
